FAERS Safety Report 12257089 (Version 1)
Quarter: 2016Q2

REPORT INFORMATION
  Report Type: Spontaneous
  Country: TW (occurrence: TW)
  Receive Date: 20160412
  Receipt Date: 20160412
  Transmission Date: 20160815
  Serious: Yes (Hospitalization, Other)
  Sender: FDA-Public Use
  Company Number: TW-MYLANLABS-2016M1015087

PATIENT

DRUGS (5)
  1. CEFALEXIN [Concomitant]
     Active Substance: CEPHALEXIN
     Route: 065
  2. CEFTRIAXONE. [Concomitant]
     Active Substance: CEFTRIAXONE
     Route: 042
  3. PARACETAMOL [Concomitant]
     Active Substance: ACETAMINOPHEN
     Route: 065
  4. DICLOFENAC [Suspect]
     Active Substance: DICLOFENAC
     Indication: PYREXIA
     Dosage: 25 MG/DAY
     Route: 065
  5. DICLOFENAC [Suspect]
     Active Substance: DICLOFENAC
     Indication: OFF LABEL USE

REACTIONS (4)
  - Drug administered to patient of inappropriate age [Recovered/Resolved]
  - Large intestine perforation [Recovered/Resolved]
  - Peritonitis [Unknown]
  - Abdominal adhesions [Unknown]
